FAERS Safety Report 7634033-9 (Version None)
Quarter: 2011Q3

REPORT INFORMATION
  Report Type: 
  Country: None (occurrence: None)
  Receive Date: 20110725
  Receipt Date: 20110720
  Transmission Date: 20111222
  Serious: Yes (Death)
  Sender: FDA-Public Use
  Company Number: US-CELGENEUS-163-21880-11072367

PATIENT
  Sex: Female

DRUGS (9)
  1. RAMIPRIL [Concomitant]
     Route: 065
  2. MIRTAZAPINE [Concomitant]
     Route: 065
  3. OXYCONTIN [Concomitant]
     Route: 065
  4. DEXAMETHASONE [Concomitant]
     Route: 065
  5. ARICEPT [Concomitant]
     Route: 065
  6. PLAVIX [Concomitant]
     Route: 065
  7. AMITRIPTYLINE HCL [Concomitant]
     Route: 065
  8. LEXAPRO [Concomitant]
     Route: 065
  9. REVLIMID [Suspect]
     Dosage: 10 MILLIGRAM
     Route: 048
     Dates: start: 20070522

REACTIONS (1)
  - DEATH [None]
